FAERS Safety Report 15616323 (Version 6)
Quarter: 2020Q4

REPORT INFORMATION
  Report Type: Spontaneous
  Country: RO (occurrence: RO)
  Receive Date: 20181114
  Receipt Date: 20201201
  Transmission Date: 20210113
  Serious: Yes (Life-Threatening, Hospitalization, Disabling, Other)
  Sender: FDA-Public Use
  Company Number: RO-MYLANLABS-2018M1086036

PATIENT
  Age: 13 Year
  Sex: Male
  Weight: 37 kg

DRUGS (7)
  1. MYSILDECARD [Suspect]
     Active Substance: SILDENAFIL
     Indication: PULMONARY HYPERTENSION
     Dosage: 20 MILLIGRAM, TID
     Route: 048
     Dates: start: 20180108, end: 20180320
  2. SILDENAFIL. [Suspect]
     Active Substance: SILDENAFIL
     Indication: PULMONARY HYPERTENSION
     Dosage: UNK
     Dates: start: 2018
  3. KREON 10 000 [Concomitant]
     Active Substance: PANCRELIPASE
     Indication: PRODUCT USED FOR UNKNOWN INDICATION
     Dosage: UNK
  4. MYSILDECARD [Suspect]
     Active Substance: SILDENAFIL
     Dosage: 60 MILLIGRAM, QD ( (20 MG 3X/DAY))
     Route: 065
     Dates: start: 20180320, end: 20180628
  5. SILDENAFIL. [Suspect]
     Active Substance: SILDENAFIL
     Dosage: 60 MILLIGRAM, QD ( (20 MG 3X/DAY))
     Route: 065
     Dates: start: 20180320, end: 20180628
  6. GRANPIDAM [Suspect]
     Active Substance: SILDENAFIL CITRATE
     Indication: PULMONARY HYPERTENSION
     Dosage: 20 MG, TID
     Dates: start: 20180320, end: 20180628
  7. VIGANTOL                           /00318501/ [Concomitant]
     Active Substance: CHOLECALCIFEROL
     Indication: PRODUCT USED FOR UNKNOWN INDICATION
     Dosage: 1000 INTERNATIONAL UNIT, QD 1000 IU/DAY

REACTIONS (7)
  - Dyspnoea [Recovering/Resolving]
  - Fatigue [Recovering/Resolving]
  - Electrocardiogram abnormal [Recovering/Resolving]
  - N-terminal prohormone brain natriuretic peptide [Recovering/Resolving]
  - Echocardiogram abnormal [Recovering/Resolving]
  - Tricuspid valve incompetence [Recovering/Resolving]
  - Cardiac disorder [Recovering/Resolving]

NARRATIVE: CASE EVENT DATE: 20180626
